FAERS Safety Report 21604501 (Version 1)
Quarter: 2022Q4

REPORT INFORMATION
  Report Type: Spontaneous
  Country: AU (occurrence: AU)
  Receive Date: 20221116
  Receipt Date: 20221116
  Transmission Date: 20230113
  Serious: Yes (Other)
  Sender: FDA-Public Use
  Company Number: AU-TAKEDA-2022TUS084653

PATIENT
  Age: 29 Year
  Sex: Male

DRUGS (2)
  1. MESALAMINE [Suspect]
     Active Substance: MESALAMINE
     Indication: Product used for unknown indication
     Dosage: 4.8 MILLIGRAM
     Route: 065
  2. AZATHIOPRINE [Suspect]
     Active Substance: AZATHIOPRINE
     Indication: Product used for unknown indication
     Dosage: 150 MILLIGRAM
     Route: 065

REACTIONS (6)
  - Haematochezia [Unknown]
  - Microcytic anaemia [Unknown]
  - Fatigue [Unknown]
  - Blood cholesterol increased [Unknown]
  - Blood creatine phosphokinase increased [Unknown]
  - Impaired work ability [Unknown]
